FAERS Safety Report 12185302 (Version 5)
Quarter: 2016Q4

REPORT INFORMATION
  Report Type: Spontaneous
  Country: US (occurrence: US)
  Receive Date: 20160316
  Receipt Date: 20161212
  Transmission Date: 20170207
  Serious: Yes (Other)
  Sender: FDA-Public Use
  Company Number: US-GILEAD-2016-0203037

PATIENT
  Age: 54 Year
  Sex: Female

DRUGS (3)
  1. SOVALDI [Suspect]
     Active Substance: SOFOSBUVIR
     Indication: HEPATITIS C
     Dosage: UNK UNKNOWN, UNK
     Route: 048
     Dates: start: 201408, end: 201409
  2. PEGYLATED INTERFERON ALFA-2A [Suspect]
     Active Substance: PEGINTERFERON ALFA-2A
     Indication: HEPATITIS C
     Dosage: UNK
     Route: 065
     Dates: start: 20140811, end: 201409
  3. RIBAVARIN [Suspect]
     Active Substance: RIBAVIRIN
     Indication: HEPATITIS C VIRUS TEST POSITIVE
     Dosage: UNK UNKNOWN, UNK
     Route: 065
     Dates: start: 201408, end: 201409

REACTIONS (26)
  - Lymphocyte count decreased [Unknown]
  - Red blood cell count decreased [Unknown]
  - Influenza like illness [Recovered/Resolved]
  - Asthenia [Recovered/Resolved]
  - Irritability [Recovered/Resolved]
  - Treatment failure [Unknown]
  - Road traffic accident [Recovered/Resolved]
  - Hepatitis A antibody positive [Recovered/Resolved]
  - Red cell distribution width increased [Unknown]
  - Platelet count decreased [Unknown]
  - Vision blurred [Recovered/Resolved]
  - Blood chloride increased [Unknown]
  - White blood cell count decreased [Unknown]
  - Nausea [Recovered/Resolved]
  - Lymphocyte count decreased [Unknown]
  - Protein anabolism increased [Unknown]
  - Insomnia [Recovered/Resolved]
  - Rheumatoid factor increased [Unknown]
  - Drug ineffective [Unknown]
  - Blood alkaline phosphatase increased [Unknown]
  - Neutrophil count decreased [Unknown]
  - Fatigue [Recovered/Resolved]
  - Alanine aminotransferase decreased [Unknown]
  - Mean cell haemoglobin decreased [Unknown]
  - Monocyte count increased [Unknown]
  - Eosinophil count decreased [Unknown]

NARRATIVE: CASE EVENT DATE: 2014
